FAERS Safety Report 13002195 (Version 1)
Quarter: 2016Q4

REPORT INFORMATION
  Report Type: Spontaneous
  Country: GB (occurrence: GB)
  Receive Date: 20161206
  Receipt Date: 20161206
  Transmission Date: 20170207
  Serious: Yes (Disabling, Other)
  Sender: FDA-Public Use
  Company Number: GB-SA-2016SA221487

PATIENT
  Age: 66 Year
  Sex: Male

DRUGS (8)
  1. PRALUENT [Suspect]
     Active Substance: ALIROCUMAB
     Indication: BLOOD CHOLESTEROL INCREASED
     Route: 051
     Dates: start: 20161115
  2. ASPIRIN. [Concomitant]
     Active Substance: ASPIRIN
  3. ISOSORBIDE. [Concomitant]
     Active Substance: ISOSORBIDE
  4. CARDICOR [Concomitant]
     Active Substance: BISOPROLOL
  5. NORTRIPTYLINE [Concomitant]
     Active Substance: NORTRIPTYLINE
  6. ESOMEPRAZOLE [Concomitant]
     Active Substance: ESOMEPRAZOLE
  7. RAMIPRIL. [Concomitant]
     Active Substance: RAMIPRIL
  8. ALIROCUMAB PREFILLED PEN [Concomitant]
     Active Substance: ALIROCUMAB
     Indication: BLOOD CHOLESTEROL INCREASED
     Dates: start: 20161115

REACTIONS (4)
  - Flushing [Not Recovered/Not Resolved]
  - Chest pain [Not Recovered/Not Resolved]
  - Pollakiuria [Recovering/Resolving]
  - Back pain [Not Recovered/Not Resolved]
